FAERS Safety Report 6221653-1 (Version None)
Quarter: 2009Q2

REPORT INFORMATION
  Report Type: 
  Country: None (occurrence: None)
  Receive Date: 20090610
  Receipt Date: 20090529
  Transmission Date: 20091009
  Serious: Yes (Hospitalization, Other)
  Sender: FDA-Public Use
  Company Number: PHHY2009JP21314

PATIENT
  Sex: Male

DRUGS (3)
  1. DIOVAN T30230+TAB+HY [Suspect]
     Dosage: 80 MG, QD
     Route: 048
     Dates: start: 20080430, end: 20080609
  2. NORVASC [Concomitant]
     Indication: HYPERTENSION
     Dosage: 5 MG/DAY
     Route: 048
     Dates: start: 20050327, end: 20080609
  3. PLETAL [Concomitant]
     Dosage: 200 MG/DAY
     Route: 048
     Dates: start: 20050217, end: 20080609

REACTIONS (3)
  - CAROTID ARTERY STENOSIS [None]
  - CEREBRAL INFARCTION [None]
  - HEMIPLEGIA [None]
